FAERS Safety Report 9512410 (Version 1)
Quarter: 2013Q3

REPORT INFORMATION
  Report Type: Spontaneous
  Country: NL (occurrence: NL)
  Receive Date: 20130910
  Receipt Date: 20130910
  Transmission Date: 20140515
  Serious: Yes (Hospitalization)
  Sender: FDA-Public Use
  Company Number: PHHY2013NL096008

PATIENT
  Age: 68 Year
  Sex: Male

DRUGS (2)
  1. VERAPAMIL [Suspect]
     Indication: SUPRAVENTRICULAR TACHYCARDIA
     Dosage: 6700MG, OF WHICH 6300MG WAS IN EXTENDED-RELEASE CAPSULES
  2. VERAPAMIL [Suspect]
     Indication: SUPRAVENTRICULAR TACHYCARDIA
     Dosage: 6700MG, OF WHICH 6300MG WAS IN EXTENDED-RELEASE CAPSULES

REACTIONS (11)
  - Suicide attempt [Recovered/Resolved]
  - Renal failure acute [Recovered/Resolved]
  - General physical health deterioration [Recovered/Resolved]
  - Metabolic acidosis [Recovered/Resolved]
  - Blood lactic acid increased [Recovered/Resolved]
  - Shock [Recovered/Resolved]
  - Bradycardia [Recovered/Resolved]
  - Ventricular fibrillation [Recovered/Resolved]
  - Somnolence [Recovered/Resolved]
  - Intentional overdose [Recovered/Resolved]
  - Toxicity to various agents [Recovered/Resolved]
